FAERS Safety Report 7747201-2 (Version None)
Quarter: 2011Q3

REPORT INFORMATION
  Report Type: 
  Country: None (occurrence: None)
  Receive Date: 20110907
  Receipt Date: 20110823
  Transmission Date: 20111222
  Serious: Yes (Life-Threatening, Hospitalization, Disabling)
  Sender: FDA-Public Use
  Company Number: GER/UKI/11/0020786

PATIENT
  Age: 70 Year
  Sex: Male

DRUGS (4)
  1. OMEPRAZOLE [Concomitant]
  2. GAVISCON [Concomitant]
  3. CETIRIZINE HCL [Concomitant]
  4. CIPROFLOXACIN [Suspect]
     Indication: DIVERTICULITIS
     Dosage: 250 MG, 1 IN 1 D, ORAL
     Route: 048
     Dates: start: 20030630, end: 20110717

REACTIONS (2)
  - INTESTINAL DILATATION [None]
  - GASTROINTESTINAL NECROSIS [None]
